FAERS Safety Report 8209831-3 (Version None)
Quarter: 2012Q1

REPORT INFORMATION
  Report Type: 
  Country: None (occurrence: None)
  Receive Date: 20120314
  Receipt Date: 20120312
  Transmission Date: 20120608
  Serious: Yes (Other)
  Sender: FDA-Public Use
  Company Number: PHEH2012US005709

PATIENT
  Sex: Female

DRUGS (10)
  1. DIGOXIN [Concomitant]
     Dosage: 25 MG, UNK
  2. NEXIUM [Concomitant]
     Dosage: 40 MG, UNK
  3. PLAVIX [Concomitant]
     Dosage: 75 MG, UNK
  4. ASPIRIN [Concomitant]
     Dosage: 81 MG, UNK
  5. XYZAL [Concomitant]
     Dosage: 5 MG, UNK
  6. DIOVAN [Suspect]
     Dosage: 80 MG, UNK
  7. TRAZODONE HCL [Concomitant]
     Dosage: 50 MG, UNK
  8. COREG [Concomitant]
  9. NASACORT [Concomitant]
     Dosage: 50 UG, UNK
  10. MICRO-K [Concomitant]

REACTIONS (3)
  - ROTATOR CUFF SYNDROME [None]
  - ARTHRITIS [None]
  - EXOSTOSIS [None]
